FAERS Safety Report 23517459 (Version 1)
Quarter: 2024Q1

REPORT INFORMATION
  Report Type: 
  Country: None (occurrence: None)
  Receive Date: 20240213
  Receipt Date: 20240213
  Transmission Date: 20240410
  Serious: No
  Sender: FDA-Public Use
  Company Number: NO-ROCHE-3505537

PATIENT

DRUGS (16)
  1. ATEZOLIZUMAB [Suspect]
     Active Substance: ATEZOLIZUMAB
     Dosage: CYCLE 1
     Dates: start: 20240111
  2. ELIQUIS [Concomitant]
     Active Substance: APIXABAN
  3. DUTASTERIDE\TAMSULOSIN [Concomitant]
     Active Substance: DUTASTERIDE\TAMSULOSIN
     Dosage: 500+400 UG
  4. FENTANYL [Concomitant]
     Active Substance: FENTANYL\FENTANYL CITRATE
     Dosage: 1 OTHER
  5. FUROSEMIDE [Concomitant]
     Active Substance: FUROSEMIDE
  6. DUPHALAC [Concomitant]
     Active Substance: LACTULOSE
  7. METOCLOPRAMIDE HYDROCHLORIDE [Concomitant]
     Active Substance: METOCLOPRAMIDE HYDROCHLORIDE
  8. OXAZEPAM [Concomitant]
     Active Substance: OXAZEPAM
  9. OXYCONTIN [Concomitant]
     Active Substance: OXYCODONE HYDROCHLORIDE
  10. OXYCODONE HYDROCHLORIDE [Concomitant]
     Active Substance: OXYCODONE HYDROCHLORIDE
  11. ZOFRAN [Concomitant]
     Active Substance: ONDANSETRON HYDROCHLORIDE
  12. PARACET (NORWAY) [Concomitant]
  13. LYRICA [Concomitant]
     Active Substance: PREGABALIN
  14. IMOVANE [Concomitant]
     Active Substance: ZOPICLONE
  15. PANTOPRAZOLE SODIUM [Concomitant]
     Active Substance: PANTOPRAZOLE SODIUM
  16. MOMETASONE FUROATE [Concomitant]
     Active Substance: MOMETASONE FUROATE
     Dosage: 1 OTHER

REACTIONS (1)
  - Urinary tract infection [None]

NARRATIVE: CASE EVENT DATE: 20240124
